FAERS Safety Report 4954247-6 (Version None)
Quarter: 2006Q1

REPORT INFORMATION
  Report Type: 
  Country: None (occurrence: None)
  Receive Date: 20060327
  Receipt Date: 20050829
  Transmission Date: 20060701
  Serious: Yes (Hospitalization)
  Sender: FDA-Public Use
  Company Number: US-MERCK-0508USA04896

PATIENT
  Age: 65 Year
  Sex: Male
  Weight: 82 kg

DRUGS (2)
  1. VIOXX [Suspect]
     Indication: RHEUMATOID ARTHRITIS
     Route: 048
     Dates: start: 20010101, end: 20040101
  2. NORTRIPTYLINE HYDROCHLORIDE [Concomitant]
     Route: 065

REACTIONS (3)
  - CARDIAC DISORDER [None]
  - CARDIOMEGALY [None]
  - CORONARY ARTERY OCCLUSION [None]
